FAERS Safety Report 19444881 (Version 1)
Quarter: 2021Q2

REPORT INFORMATION
  Report Type: Spontaneous
  Country: JP (occurrence: JP)
  Receive Date: 20210621
  Receipt Date: 20210621
  Transmission Date: 20210717
  Serious: Yes (Hospitalization)
  Sender: FDA-Public Use
  Company Number: JP-ELI_LILLY_AND_COMPANY-JP202008010802

PATIENT
  Age: 75 Year
  Sex: Female
  Weight: 55.2 kg

DRUGS (16)
  1. UPTRAVI [Suspect]
     Active Substance: SELEXIPAG
     Dosage: 0.8 MG, DAILY
     Route: 048
     Dates: start: 20190411, end: 20190605
  2. UPTRAVI [Suspect]
     Active Substance: SELEXIPAG
     Dosage: 0.6 MG, BID
     Route: 048
     Dates: start: 20201015
  3. UPTRAVI [Suspect]
     Active Substance: SELEXIPAG
     Indication: PULMONARY ARTERIAL HYPERTENSION
     Dosage: 0.2 MG, DAILY
     Route: 048
     Dates: start: 20190131, end: 20190206
  4. UPTRAVI [Suspect]
     Active Substance: SELEXIPAG
     Dosage: 0.4 MG, DAILY
     Route: 048
     Dates: start: 20190207, end: 20190410
  5. UPTRAVI [Suspect]
     Active Substance: SELEXIPAG
     Dosage: 0.8 MG, DAILY
     Route: 048
     Dates: start: 20190627
  6. HEPARINOID [Concomitant]
     Active Substance: CHONDROITIN SULFATE (BOVINE)
     Indication: SCLERODERMA
     Dosage: UNK UNK, UNKNOWN
     Route: 065
     Dates: start: 20181025
  7. UPTRAVI [Suspect]
     Active Substance: SELEXIPAG
     Dosage: UNK
  8. LIXIANA [Concomitant]
     Active Substance: EDOXABAN TOSYLATE
     Indication: PRODUCT USED FOR UNKNOWN INDICATION
     Dosage: UNK UNK, UNKNOWN
     Route: 065
     Dates: start: 20180724
  9. AZOSEMIDE [Concomitant]
     Active Substance: AZOSEMIDE
     Indication: PRODUCT USED FOR UNKNOWN INDICATION
     Dosage: 30 MG, UNKNOWN
     Route: 065
     Dates: start: 20180330
  10. ADCIRCA [Suspect]
     Active Substance: TADALAFIL
     Indication: PULMONARY ARTERIAL HYPERTENSION
     Dosage: 40 MG, DAILY
     Route: 065
     Dates: start: 20180724
  11. ROSUVASTATIN. [Concomitant]
     Active Substance: ROSUVASTATIN
     Indication: DYSLIPIDAEMIA
     Dosage: 2.5 MG, UNKNOWN
     Route: 065
     Dates: start: 20180725
  12. UPTRAVI [Suspect]
     Active Substance: SELEXIPAG
     Dosage: 1.0 MG, DAILY
     Route: 048
     Dates: start: 20190606, end: 20190626
  13. UPTRAVI [Suspect]
     Active Substance: SELEXIPAG
     Dosage: 0.8 MG, BID
     Route: 048
     Dates: start: 20210115
  14. VOLIBRIS [Concomitant]
     Active Substance: AMBRISENTAN
     Indication: PULMONARY ARTERIAL HYPERTENSION
     Dosage: UNK UNK, UNKNOWN
     Route: 065
     Dates: start: 20180724
  15. LOCOID [Concomitant]
     Active Substance: HYDROCORTISONE BUTYRATE
     Indication: SCLERODERMA
     Dosage: UNK UNK, UNKNOWN
     Route: 065
     Dates: start: 20190221
  16. SLOW?K [Concomitant]
     Active Substance: POTASSIUM CHLORIDE
     Indication: PRODUCT USED FOR UNKNOWN INDICATION
     Dosage: UNK UNK, UNKNOWN
     Route: 065
     Dates: start: 20180725, end: 20190313

REACTIONS (5)
  - Large intestine polyp [Not Recovered/Not Resolved]
  - Iron deficiency anaemia [Recovering/Resolving]
  - Diarrhoea [Recovered/Resolved]
  - Diarrhoea [Recovered/Resolved]
  - Diarrhoea [Recovered/Resolved]

NARRATIVE: CASE EVENT DATE: 20190221
